FAERS Safety Report 7992207-1 (Version None)
Quarter: 2011Q4

REPORT INFORMATION
  Report Type: 
  Country: None (occurrence: None)
  Receive Date: 20111219
  Receipt Date: 20110831
  Transmission Date: 20120403
  Serious: No
  Sender: FDA-Public Use
  Company Number: US-ASTRAZENECA-2011SE52582

PATIENT

DRUGS (2)
  1. CRESTOR [Suspect]
     Route: 048
  2. LOVASTATIN [Concomitant]
     Indication: HYPERCHOLESTEROLAEMIA

REACTIONS (2)
  - MUSCLE ATROPHY [None]
  - MYALGIA [None]
